FAERS Safety Report 12106586 (Version 2)
Quarter: 2018Q1

REPORT INFORMATION
  Report Type: Report from Study
  Country: US (occurrence: US)
  Receive Date: 20160223
  Receipt Date: 20180209
  Transmission Date: 20180508
  Serious: Yes (Other)
  Sender: FDA-Public Use
  Company Number: US-ROCHE-1657925

PATIENT

DRUGS (8)
  1. DEXAMETHASONE. [Suspect]
     Active Substance: DEXAMETHASONE
     Route: 065
  2. RITUXIMAB. [Suspect]
     Active Substance: RITUXIMAB
     Indication: CENTRAL NERVOUS SYSTEM LYMPHOMA
     Dosage: FOR 1 TO 4 WEEK
     Route: 042
  3. LEUCOVORIN. [Suspect]
     Active Substance: LEUCOVORIN
     Indication: CENTRAL NERVOUS SYSTEM LYMPHOMA
     Route: 065
  4. CYTARABINE. [Suspect]
     Active Substance: CYTARABINE
     Indication: CENTRAL NERVOUS SYSTEM LYMPHOMA
     Route: 042
  5. METHOTREXATE. [Suspect]
     Active Substance: METHOTREXATE
     Indication: CENTRAL NERVOUS SYSTEM LYMPHOMA
     Route: 042
  6. VINCRISTINE [Suspect]
     Active Substance: VINCRISTINE
     Indication: CENTRAL NERVOUS SYSTEM LYMPHOMA
     Dosage: (FLAT CAP OF 2.8MG) WEEKS 1, 3, 5, 7 AND 9.
     Route: 042
  7. PROCARBAZINE [Suspect]
     Active Substance: PROCARBAZINE
     Indication: CENTRAL NERVOUS SYSTEM LYMPHOMA
     Dosage: DAILY FOR 7 DAYS IN WEEKS 1, 5, AND 9.
     Route: 048
  8. DEXAMETHASONE. [Suspect]
     Active Substance: DEXAMETHASONE
     Indication: CENTRAL NERVOUS SYSTEM LYMPHOMA
     Dosage: 16MG/DAY WEEK 1, TAPERED BY 4 MG/WEEK FOR WEEKS 2 AND 3. 2MG/WEEK WEEKS 4-6.
     Route: 065

REACTIONS (40)
  - Large intestine perforation [Unknown]
  - Depression [Unknown]
  - Hypophosphataemia [Unknown]
  - Alanine aminotransferase increased [Unknown]
  - Anaemia [Unknown]
  - Hypocalcaemia [Unknown]
  - Dysphagia [Unknown]
  - Rash [Unknown]
  - Skin exfoliation [Unknown]
  - Lymphopenia [Unknown]
  - Oral pain [Unknown]
  - Muscular weakness [Unknown]
  - Gastric perforation [Unknown]
  - Infection [Unknown]
  - Myalgia [Unknown]
  - Cranial nerve disorder [Unknown]
  - Febrile neutropenia [Unknown]
  - Oesophagitis [Unknown]
  - Thrombocytopenia [Unknown]
  - Confusional state [Unknown]
  - Hyponatraemia [Unknown]
  - Hypokalaemia [Unknown]
  - Thrombosis [Unknown]
  - Neutropenia [Unknown]
  - Peripheral motor neuropathy [Unknown]
  - Pain in extremity [Unknown]
  - Arthralgia [Unknown]
  - White blood cell disorder [Unknown]
  - Ataxia [Unknown]
  - Asthenia [Unknown]
  - Hyperglycaemia [Unknown]
  - Oropharyngeal pain [Unknown]
  - Aspartate aminotransferase increased [Unknown]
  - Oesophageal pain [Unknown]
  - Headache [Unknown]
  - Hypoxia [Unknown]
  - Embolism [Unknown]
  - Pharyngeal inflammation [Unknown]
  - Stomatitis [Unknown]
  - Fatigue [Unknown]
